FAERS Safety Report 8559435-8 (Version None)
Quarter: 2012Q3

REPORT INFORMATION
  Report Type: 
  Country: None (occurrence: None)
  Receive Date: 20120802
  Receipt Date: 20120727
  Transmission Date: 20120928
  Serious: No
  Sender: FDA-Public Use
  Company Number: US-JNJFOC-20120714306

PATIENT
  Sex: Male

DRUGS (2)
  1. INVEGA SUSTENNA [Suspect]
     Indication: PSYCHOTIC DISORDER
     Route: 030
     Dates: start: 20111101
  2. INVEGA SUSTENNA [Suspect]
     Route: 030

REACTIONS (3)
  - GYNAECOMASTIA [None]
  - BREAST ENLARGEMENT [None]
  - WEIGHT INCREASED [None]
